FAERS Safety Report 10925988 (Version 1)
Quarter: 2015Q1

REPORT INFORMATION
  Report Type: Spontaneous
  Country: US (occurrence: US)
  Receive Date: 20150318
  Receipt Date: 20150318
  Transmission Date: 20150721
  Serious: Yes (Other)
  Sender: FDA-Public Use
  Company Number: US-GLAXOSMITHKLINE-A0653929A

PATIENT
  Age: 52 Year
  Sex: Female
  Weight: 58.1 kg

DRUGS (2)
  1. FLOLAN [Suspect]
     Active Substance: EPOPROSTENOL SODIUM
     Dosage: 27 NG/KG/MIN, CO
     Route: 042
  2. FLOLAN [Suspect]
     Active Substance: EPOPROSTENOL SODIUM
     Indication: PULMONARY ARTERIAL HYPERTENSION
     Dosage: 24 NG/KG/MIN
     Route: 042
     Dates: start: 20010518

REACTIONS (3)
  - Device alarm issue [Unknown]
  - Product quality issue [Unknown]
  - Application site erythema [Unknown]

NARRATIVE: CASE EVENT DATE: 20070521
